FAERS Safety Report 13820975 (Version 2)
Quarter: 2017Q3

REPORT INFORMATION
  Report Type: Report from Study
  Country: US (occurrence: US)
  Receive Date: 20170801
  Receipt Date: 20170815
  Transmission Date: 20171127
  Serious: Yes (Hospitalization, Other)
  Sender: FDA-Public Use
  Company Number: US-GILEAD-2017-0285792

PATIENT
  Age: 42 Year
  Sex: Female

DRUGS (14)
  1. REVATIO [Concomitant]
     Active Substance: SILDENAFIL CITRATE
  2. IPRATROPIUM [Concomitant]
     Active Substance: IPRATROPIUM
  3. BUDESONIDE. [Concomitant]
     Active Substance: BUDESONIDE
  4. TORSEMIDE. [Concomitant]
     Active Substance: TORSEMIDE
  5. METHOTREXATE. [Concomitant]
     Active Substance: METHOTREXATE
  6. AMBRISENTAN [Suspect]
     Active Substance: AMBRISENTAN
     Indication: PRODUCT USED FOR UNKNOWN INDICATION
     Dosage: 10 MG, QD
     Route: 065
     Dates: start: 20151009
  7. ALBUTEROL                          /00139501/ [Concomitant]
     Active Substance: ALBUTEROL
  8. FAMOTIDINE. [Concomitant]
     Active Substance: FAMOTIDINE
  9. ATORVASTATIN [Concomitant]
     Active Substance: ATORVASTATIN
  10. METOLAZONE. [Concomitant]
     Active Substance: METOLAZONE
  11. ASA [Concomitant]
     Active Substance: ASPIRIN
  12. FOLIC ACID. [Concomitant]
     Active Substance: FOLIC ACID
  13. INSULIN [Concomitant]
     Active Substance: INSULIN NOS
  14. OXYCODONE [Concomitant]
     Active Substance: OXYCODONE

REACTIONS (8)
  - Cardiac failure [Unknown]
  - Cardiac disorder [Unknown]
  - Hypoxia [Unknown]
  - Abdominal distension [Recovered/Resolved]
  - Dyspnoea [Recovered/Resolved]
  - Oedema peripheral [Unknown]
  - Peripheral swelling [Recovered/Resolved]
  - Oedema [Recovered/Resolved]
